FAERS Safety Report 21566894 (Version 1)
Quarter: 2022Q4

REPORT INFORMATION
  Report Type: Spontaneous
  Country: US (occurrence: US)
  Receive Date: 20221108
  Receipt Date: 20221108
  Transmission Date: 20230113
  Serious: Yes (Life-Threatening, Hospitalization, Other)
  Sender: FDA-Public Use
  Company Number: US-JUBILANT CADISTA PHARMACEUTICALS-2022JUB00412

PATIENT
  Age: 12 Year

DRUGS (1)
  1. AMLODIPINE [Suspect]
     Active Substance: AMLODIPINE BESYLATE
     Dosage: INGESTING AN UNKNOWN AMOUNT
     Route: 048

REACTIONS (3)
  - Cardiogenic shock [Recovered/Resolved]
  - Oliguria [Recovered/Resolved]
  - Overdose [Recovered/Resolved]
